FAERS Safety Report 7617653-7 (Version None)
Quarter: 2011Q3

REPORT INFORMATION
  Report Type: 
  Country: None (occurrence: None)
  Receive Date: 20110718
  Receipt Date: 20110707
  Transmission Date: 20111222
  Serious: Yes (Other)
  Sender: FDA-Public Use
  Company Number: US-JNJFOC-20110704909

PATIENT
  Sex: Female
  Weight: 77.11 kg

DRUGS (4)
  1. AMBIEN [Concomitant]
     Indication: SLEEP DISORDER
     Route: 048
  2. ELMIRON [Suspect]
     Indication: CYSTITIS INTERSTITIAL
     Route: 048
  3. ELMIRON [Suspect]
     Route: 048
     Dates: start: 20110201
  4. LEVOTHYROXINE SODIUM [Concomitant]
     Indication: THYROID DISORDER
     Dosage: 224MG/TABLET/112MG/ONCE  DAILY/ORAL
     Route: 048

REACTIONS (2)
  - BLOOD URINE PRESENT [None]
  - CYSTITIS [None]
